FAERS Safety Report 16190290 (Version 1)
Quarter: 2019Q2

REPORT INFORMATION
  Report Type: Spontaneous
  Country: US (occurrence: US)
  Receive Date: 20190311
  Receipt Date: 20190311
  Transmission Date: 20190711
  Serious: No
  Sender: FDA-Public Use
  Company Number: None

PATIENT
  Age: 47 Year
  Sex: Female

DRUGS (1)
  1. DALFAMPRIDINE 10MG ER TAB [Suspect]
     Active Substance: DALFAMPRIDINE
     Route: 048

REACTIONS (6)
  - Peripheral swelling [None]
  - Therapy cessation [None]
  - Insurance issue [None]
  - Withdrawal syndrome [None]
  - Musculoskeletal disorder [None]
  - Hemiparesis [None]

NARRATIVE: CASE EVENT DATE: 20190311
